APPROVED DRUG PRODUCT: PHENYLEPHRINE HYDROCHLORIDE
Active Ingredient: PHENYLEPHRINE HYDROCHLORIDE
Strength: 10%
Dosage Form/Route: SOLUTION/DROPS;OPHTHALMIC
Application: N207926 | Product #002 | TE Code: AT
Applicant: ALCON RESEARCH LLC
Approved: Jan 15, 2015 | RLD: Yes | RS: No | Type: RX